FAERS Safety Report 12037228 (Version 1)
Quarter: 2016Q1

REPORT INFORMATION
  Report Type: Spontaneous
  Country: US (occurrence: None)
  Receive Date: 20160205
  Receipt Date: 20160205
  Transmission Date: 20160526
  Serious: No
  Sender: FDA-Public Use
  Company Number: None

PATIENT
  Age: 57 Year
  Sex: Male

DRUGS (1)
  1. TEMOZOLOMIDE 100MG SANDOZ [Suspect]
     Active Substance: TEMOZOLOMIDE
     Dosage: DAILY FOR 5 DAYS EVERY 28 DAYS
     Route: 048
     Dates: start: 20130724

REACTIONS (2)
  - Depression [None]
  - Stomatitis [None]

NARRATIVE: CASE EVENT DATE: 20151101
